FAERS Safety Report 7656524-7 (Version None)
Quarter: 2011Q3

REPORT INFORMATION
  Report Type: 
  Country: None (occurrence: None)
  Receive Date: 20110804
  Receipt Date: 20101014
  Transmission Date: 20111222
  Serious: No
  Sender: FDA-Public Use
  Company Number: US-BAUSCH-2010BL005833

PATIENT
  Age: 37 Year
  Sex: Male

DRUGS (4)
  1. OPCON-A [Suspect]
     Indication: OFF LABEL USE
     Route: 047
     Dates: start: 20101008, end: 20101009
  2. OPCON-A [Suspect]
     Indication: DRY EYE
     Route: 047
     Dates: start: 20101008, end: 20101009
  3. TRAMADOL HCL [Concomitant]
     Indication: PAIN
  4. OPCON-A [Suspect]
     Indication: OCULAR HYPERAEMIA
     Route: 047
     Dates: start: 20101008, end: 20101009

REACTIONS (2)
  - DRY EYE [None]
  - EYE PAIN [None]
